FAERS Safety Report 12838973 (Version 2)
Quarter: 2016Q4

REPORT INFORMATION
  Report Type: Spontaneous
  Country: US (occurrence: US)
  Receive Date: 20161012
  Receipt Date: 20161026
  Transmission Date: 20170207
  Serious: No
  Sender: FDA-Public Use
  Company Number: US-PFIZER INC-2016467815

PATIENT
  Age: 66 Year
  Sex: Female
  Weight: 111.1 kg

DRUGS (1)
  1. DOXYCYCLINE HYCLATE. [Suspect]
     Active Substance: DOXYCYCLINE HYCLATE
     Indication: OROPHARYNGEAL PAIN
     Dosage: 100 MG, 2X/DAY
     Route: 048
     Dates: start: 20160810, end: 20161007

REACTIONS (1)
  - Drug ineffective [Unknown]
